FAERS Safety Report 6646265-7 (Version None)
Quarter: 2010Q1

REPORT INFORMATION
  Report Type: 
  Country: None (occurrence: None)
  Receive Date: 20100323
  Receipt Date: 20100317
  Transmission Date: 20100710
  Serious: Yes (Death, Hospitalization, Other)
  Sender: FDA-Public Use
  Company Number: JP-BAYER-200914529BYL

PATIENT
  Age: 72 Year
  Sex: Male

DRUGS (5)
  1. FLUDARA [Suspect]
     Indication: FOLLICLE CENTRE LYMPHOMA, FOLLICULAR GRADE I, II, III
     Route: 041
     Dates: start: 20090408, end: 20090410
  2. FLUDARA [Suspect]
     Route: 041
     Dates: start: 20090430, end: 20090502
  3. ENDOXAN [Concomitant]
     Indication: FOLLICLE CENTRE LYMPHOMA, FOLLICULAR GRADE I, II, III
     Route: 041
     Dates: start: 20090408, end: 20090410
  4. ENDOXAN [Concomitant]
     Route: 041
     Dates: start: 20090430, end: 20090502
  5. RITUXAN [Concomitant]
     Indication: FOLLICLE CENTRE LYMPHOMA, FOLLICULAR GRADE I, II, III
     Route: 041
     Dates: start: 20090429, end: 20090429

REACTIONS (3)
  - AUTOIMMUNE THROMBOCYTOPENIA [None]
  - DEATH [None]
  - PNEUMONIA [None]
